FAERS Safety Report 20220620 (Version 2)
Quarter: 2022Q2

REPORT INFORMATION
  Report Type: Spontaneous
  Country: US (occurrence: US)
  Receive Date: 20211223
  Receipt Date: 20220616
  Transmission Date: 20220721
  Serious: Yes (Other)
  Sender: FDA-Public Use
  Company Number: US-GILEAD-2021-0561983

PATIENT
  Sex: Male
  Weight: 61.224 kg

DRUGS (4)
  1. ATRIPLA [Suspect]
     Active Substance: EFAVIRENZ\EMTRICITABINE\TENOFOVIR DISOPROXIL FUMARATE
     Indication: HIV infection
     Dosage: UNK
     Route: 048
     Dates: start: 2006
  2. ATRIPLA [Suspect]
     Active Substance: EFAVIRENZ\EMTRICITABINE\TENOFOVIR DISOPROXIL FUMARATE
     Dosage: UNK
     Route: 048
     Dates: start: 1998, end: 2014
  3. DESCOVY [Concomitant]
     Active Substance: EMTRICITABINE\TENOFOVIR ALAFENAMIDE FUMARATE
  4. SUSTIVA [Concomitant]
     Active Substance: EFAVIRENZ

REACTIONS (14)
  - Osteoporosis [Unknown]
  - Multiple fractures [Unknown]
  - Hip fracture [Recovered/Resolved]
  - Bone demineralisation [Not Recovered/Not Resolved]
  - Osteopenia [Unknown]
  - Emotional distress [Not Recovered/Not Resolved]
  - Anhedonia [Not Recovered/Not Resolved]
  - Anxiety [Not Recovered/Not Resolved]
  - Pain [Not Recovered/Not Resolved]
  - Degenerative bone disease [Unknown]
  - Upper limb fracture [Recovered/Resolved]
  - Fracture [Recovered/Resolved]
  - Bone density decreased [Unknown]
  - Musculoskeletal procedural complication [Not Recovered/Not Resolved]

NARRATIVE: CASE EVENT DATE: 20100101
